FAERS Safety Report 12985278 (Version 2)
Quarter: 2016Q4

REPORT INFORMATION
  Report Type: Spontaneous
  Country: FR (occurrence: FR)
  Receive Date: 20161130
  Receipt Date: 20161201
  Transmission Date: 20170207
  Serious: Yes (Other)
  Sender: FDA-Public Use
  Company Number: FR-B.I. PHARMACEUTICALS,INC./RIDGEFIELD-2016-BI-081281

PATIENT
  Age: 62 Year
  Sex: Female

DRUGS (5)
  1. CATAPRESSAN [Suspect]
     Active Substance: CLONIDINE
     Indication: SPINAL ANAESTHESIA
     Route: 037
     Dates: start: 201611
  2. MORPHINE [Suspect]
     Active Substance: MORPHINE
     Indication: SPINAL ANAESTHESIA
     Dosage: STRENGTH: 0.1MG/ML
     Route: 037
     Dates: start: 201611
  3. BUPIVACAINE. [Suspect]
     Active Substance: BUPIVACAINE
     Route: 037
     Dates: start: 201611
  4. BUPIVACAINE. [Suspect]
     Active Substance: BUPIVACAINE
     Indication: SPINAL ANAESTHESIA
     Dosage: STRENGTH: 0.5%
     Route: 037
     Dates: start: 201611
  5. SUFENTANIL MYLAN [Suspect]
     Active Substance: SUFENTANIL
     Indication: SPINAL ANAESTHESIA
     Route: 037
     Dates: start: 201611

REACTIONS (1)
  - Respiratory distress [Recovered/Resolved]

NARRATIVE: CASE EVENT DATE: 201611
